FAERS Safety Report 12541948 (Version 1)
Quarter: 2016Q3

REPORT INFORMATION
  Report Type: Spontaneous
  Country: US (occurrence: US)
  Receive Date: 20160708
  Receipt Date: 20160708
  Transmission Date: 20161109
  Serious: Yes (Hospitalization, Other)
  Sender: FDA-Public Use
  Company Number: US-SA-2016SA125365

PATIENT
  Age: 77 Year
  Sex: Female

DRUGS (31)
  1. ADVAIR HFA [Suspect]
     Active Substance: FLUTICASONE PROPIONATE\SALMETEROL XINAFOATE
     Indication: ASTHMA
     Dosage: DOSE:2 PUFF(S), BID, INHALED SPACER, 115/21 MCG?DOSAGE FORM:INHALER?ADVAIR  SAME INN
     Route: 065
  2. METHOTREXATE. [Concomitant]
     Active Substance: METHOTREXATE
  3. FLUTICASONE [Concomitant]
     Active Substance: FLUTICASONE\FLUTICASONE PROPIONATE
     Dosage: NASAL SPRAY
  4. PRIMIDONE. [Concomitant]
     Active Substance: PRIMIDONE
  5. GABAPENTIN. [Concomitant]
     Active Substance: GABAPENTIN
  6. CITALOPRAM [Concomitant]
     Active Substance: CITALOPRAM HYDROBROMIDE
  7. ADVAIR HFA [Suspect]
     Active Substance: FLUTICASONE PROPIONATE\SALMETEROL XINAFOATE
     Indication: CHRONIC OBSTRUCTIVE PULMONARY DISEASE
     Dosage: DOSE:2 PUFF(S), BID, INHALED SPACER, 115/21 MCG?DOSAGE FORM:INHALER?ADVAIR  SAME INN
     Route: 065
  8. ATENOLOL. [Concomitant]
     Active Substance: ATENOLOL
  9. FOLIC ACID. [Concomitant]
     Active Substance: FOLIC ACID
  10. LORATADINE. [Concomitant]
     Active Substance: LORATADINE
  11. SIMVASTATIN. [Concomitant]
     Active Substance: SIMVASTATIN
  12. PREDNISONE. [Concomitant]
     Active Substance: PREDNISONE
  13. CALCIUM CITRATE [Concomitant]
     Active Substance: CALCIUM CITRATE
  14. PROAIR HFA [Concomitant]
     Active Substance: ALBUTEROL SULFATE
  15. ADVAIR HFA [Suspect]
     Active Substance: FLUTICASONE PROPIONATE\SALMETEROL XINAFOATE
     Indication: ASTHMA
     Dosage: DOSE:2 PUFF(S), BID, INHALED SPACER, 115/21 MCG?DOSAGE FORM:INHALER?ADVAIR  SAME INN
     Route: 065
  16. ADVAIR HFA [Suspect]
     Active Substance: FLUTICASONE PROPIONATE\SALMETEROL XINAFOATE
     Indication: ASTHMA
     Dosage: DOSE:2 PUFF(S), BID, INHALED SPACER, 115/21 MCG?DOSAGE FORM:INHALER?ADVAIR  SAME INN
     Route: 065
  17. OMEPRAZOLE. [Concomitant]
     Active Substance: OMEPRAZOLE
  18. NORVASC [Concomitant]
     Active Substance: AMLODIPINE BESYLATE
  19. SERTRALINE [Concomitant]
     Active Substance: SERTRALINE HYDROCHLORIDE
  20. ADVAIR HFA [Suspect]
     Active Substance: FLUTICASONE PROPIONATE\SALMETEROL XINAFOATE
     Indication: CHRONIC OBSTRUCTIVE PULMONARY DISEASE
     Dosage: DOSE:2 PUFF(S), BID, INHALED SPACER, 115/21 MCG?DOSAGE FORM:INHALER?ADVAIR  SAME INN
     Route: 065
  21. ADVAIR HFA [Suspect]
     Active Substance: FLUTICASONE PROPIONATE\SALMETEROL XINAFOATE
     Indication: CHRONIC OBSTRUCTIVE PULMONARY DISEASE
     Dosage: DOSE:2 PUFF(S), BID, INHALED SPACER, 115/21 MCG?DOSAGE FORM:INHALER?ADVAIR  SAME INN
     Route: 065
  22. VITAMIN B12 [Concomitant]
     Active Substance: CYANOCOBALAMIN
  23. FUROSEMIDE. [Concomitant]
     Active Substance: FUROSEMIDE
  24. BABY ASPIRIN [Concomitant]
     Active Substance: ASPIRIN
  25. CALCIUM/ERGOCALCIFEROL [Concomitant]
  26. VITAMIN D [Concomitant]
     Active Substance: CHOLECALCIFEROL
  27. PLAVIX [Suspect]
     Active Substance: CLOPIDOGREL BISULFATE
     Route: 065
  28. FISH OIL [Concomitant]
     Active Substance: FISH OIL
  29. ISOSORBIDE. [Concomitant]
     Active Substance: ISOSORBIDE
  30. LYRICA [Concomitant]
     Active Substance: PREGABALIN
  31. VITAMIN C [Concomitant]
     Active Substance: ASCORBIC ACID

REACTIONS (10)
  - Laryngitis [Recovering/Resolving]
  - Increased viscosity of upper respiratory secretion [Recovering/Resolving]
  - Cough [Recovering/Resolving]
  - Bronchitis [Recovering/Resolving]
  - Muscle rupture [Unknown]
  - Malaise [Recovered/Resolved]
  - Staphylococcal infection [Not Recovered/Not Resolved]
  - Pneumonia [Recovered/Resolved]
  - Aortic aneurysm [Unknown]
  - Aortic aneurysm repair [Unknown]

NARRATIVE: CASE EVENT DATE: 201306
